FAERS Safety Report 8094312 (Version 3)
Quarter: 2014Q2

REPORT INFORMATION
  Report Type: Spontaneous
  Country: US (occurrence: US)
  Receive Date: 20110817
  Receipt Date: 20140415
  Transmission Date: 20141212
  Serious: Yes (Hospitalization)
  Sender: FDA-Public Use
  Company Number: US-ASTRAZENECA-2011SE47400

PATIENT
  Age: 64 Year
  Sex: Male
  Weight: 93.4 kg

DRUGS (7)
  1. NEXIUM [Suspect]
     Indication: GASTROOESOPHAGEAL REFLUX DISEASE
     Route: 048
  2. NEXIUM [Suspect]
     Indication: HIATUS HERNIA
     Route: 048
  3. SEROQUEL [Suspect]
     Indication: DEPRESSION
     Route: 048
     Dates: start: 2003
  4. SEROQUEL [Suspect]
     Indication: NERVOUS SYSTEM DISORDER
     Route: 048
     Dates: start: 2003
  5. SEROQUEL [Suspect]
     Indication: DEPRESSION
     Route: 048
  6. SEROQUEL [Suspect]
     Indication: NERVOUS SYSTEM DISORDER
     Route: 048
  7. BLOOD PRESSURE MEICATION [Concomitant]
     Indication: HYPERTENSION

REACTIONS (9)
  - Hypotension [Recovered/Resolved]
  - Hernia [Unknown]
  - Gastric disorder [Unknown]
  - Hiatus hernia [Unknown]
  - Oesophageal pain [Unknown]
  - Dyspepsia [Unknown]
  - Aphagia [Unknown]
  - Gastrooesophageal reflux disease [Unknown]
  - Drug dose omission [Unknown]
